FAERS Safety Report 17715344 (Version 1)
Quarter: 2020Q2

REPORT INFORMATION
  Report Type: Report from Study
  Country: GB (occurrence: GB)
  Receive Date: 20200427
  Receipt Date: 20200427
  Transmission Date: 20200714
  Serious: Yes (Other)
  Sender: FDA-Public Use
  Company Number: NVSC2020GB107479

PATIENT
  Sex: Male

DRUGS (1)
  1. HYRIMOZ [Suspect]
     Active Substance: ADALIMUMAB-ADAZ
     Indication: COLITIS ULCERATIVE
     Dosage: UNK (160 MG WEEK 0, 80 MG WEEK 2, 40 MG WEEK 4. EOW THEREAFTER)
     Route: 065
     Dates: end: 20200410

REACTIONS (5)
  - Product dose omission [Unknown]
  - Impaired gastric emptying [Unknown]
  - Colitis ulcerative [Unknown]
  - Haematochezia [Unknown]
  - Frequent bowel movements [Unknown]
